FAERS Safety Report 9832096 (Version 1)
Quarter: 2014Q1

REPORT INFORMATION
  Report Type: Spontaneous
  Country: IT (occurrence: IT)
  Receive Date: 20140121
  Receipt Date: 20140121
  Transmission Date: 20141002
  Serious: Yes (Disabling)
  Sender: FDA-Public Use
  Company Number: PHHY2014IT005802

PATIENT
  Age: 55 Year
  Sex: Female

DRUGS (10)
  1. ZOMETA [Suspect]
     Indication: BREAST CANCER
     Dosage: 4 MG, CICLYC
     Route: 041
     Dates: start: 20110401, end: 20120630
  2. BONDRONAT [Suspect]
     Indication: BREAST CANCER
     Dosage: 50 MG, DAILY
     Route: 048
     Dates: start: 20120701, end: 20121130
  3. LANSOPRAZOLE [Concomitant]
     Dosage: UNK UKN, UNK
  4. REPAGLINIDE [Concomitant]
     Dosage: UNK UKN, UNK
  5. LOPRESOR [Concomitant]
     Indication: HYPERTENSION
     Dosage: 50 MG, UNK
     Dates: start: 1992
  6. EUTIMIL [Concomitant]
     Dosage: 20 MG, UNK
     Dates: start: 1992
  7. AROMASIN [Concomitant]
     Dosage: UNK UKN, UNK
  8. DIBASE [Concomitant]
     Dosage: UNK UKN, UNK
  9. CALCIUM [Concomitant]
     Dosage: UNK UKN, UNK
  10. CHEMOTHERAPEUTICS [Concomitant]
     Dosage: 100 FOR 3 CYCLES

REACTIONS (1)
  - Osteonecrosis of jaw [Not Recovered/Not Resolved]
